FAERS Safety Report 18636484 (Version 1)
Quarter: 2020Q4

REPORT INFORMATION
  Report Type: Spontaneous
  Country: FR (occurrence: FR)
  Receive Date: 20201218
  Receipt Date: 20201218
  Transmission Date: 20210114
  Serious: Yes (Death, Other)
  Sender: FDA-Public Use
  Company Number: FR-009507513-2012FRA005900

PATIENT
  Age: 51 Year
  Sex: Male

DRUGS (5)
  1. RIBAVIRIN. [Suspect]
     Active Substance: RIBAVIRIN
     Dosage: UNK
     Route: 048
     Dates: start: 20140213, end: 20140801
  2. DACLATASVIR. [Suspect]
     Active Substance: DACLATASVIR
     Dosage: UNK
     Dates: start: 20150313, end: 20150828
  3. RIBAVIRIN. [Suspect]
     Active Substance: RIBAVIRIN
     Dosage: UNK
     Route: 048
     Dates: start: 20150313, end: 20150828
  4. SOFOSBUVIR [Suspect]
     Active Substance: SOFOSBUVIR
     Dosage: UNK
     Dates: start: 20140213, end: 20140801
  5. SOFOSBUVIR [Suspect]
     Active Substance: SOFOSBUVIR
     Dosage: UNK
     Dates: start: 20150313, end: 20150828

REACTIONS (2)
  - Hepatocellular carcinoma [Fatal]
  - Portal vein thrombosis [Fatal]

NARRATIVE: CASE EVENT DATE: 20190814
